FAERS Safety Report 12094879 (Version 1)
Quarter: 2016Q1

REPORT INFORMATION
  Report Type: Spontaneous
  Country: FR (occurrence: FR)
  Receive Date: 20160219
  Receipt Date: 20160219
  Transmission Date: 20160526
  Serious: Yes (Hospitalization)
  Sender: FDA-Public Use
  Company Number: FR-PFIZER INC-2016086266

PATIENT
  Age: 44 Year
  Sex: Male

DRUGS (15)
  1. ETOPOSIDE. [Suspect]
     Active Substance: ETOPOSIDE
     Indication: HODGKIN^S DISEASE
     Dosage: 100 MG/M2, UNK
     Route: 042
     Dates: start: 201210, end: 201301
  2. ETOPOSIDE. [Suspect]
     Active Substance: ETOPOSIDE
     Dosage: 200 MG/M2 (OR 380 MG), UNK
     Route: 042
     Dates: start: 20130227, end: 20130302
  3. BICNU [Suspect]
     Active Substance: CARMUSTINE
     Dosage: 300 MG/M2 (OR 570 MG), UNK
     Route: 042
     Dates: start: 20130226, end: 20130226
  4. BLEOMYCINE BELLON [Suspect]
     Active Substance: BLEOMYCIN SULFATE
     Indication: HODGKIN^S DISEASE
     Dosage: 10 MG/M2, UNK
     Route: 042
     Dates: start: 200510, end: 200605
  5. ARACYTINE [Suspect]
     Active Substance: CYTARABINE
     Indication: HODGKIN^S DISEASE
     Dosage: 4000 MG/M2, UNK
     Route: 042
     Dates: start: 201206, end: 201209
  6. CISPLATIN. [Suspect]
     Active Substance: CISPLATIN
     Dosage: 25 MG/M2, UNK
     Route: 042
     Dates: start: 201210, end: 201301
  7. ARACYTINE [Suspect]
     Active Substance: CYTARABINE
     Dosage: 400 MG/M2 (OR 760 MG), UNK
     Dates: start: 20130227, end: 20130302
  8. DETICENE [Suspect]
     Active Substance: DACARBAZINE
     Indication: HODGKIN^S DISEASE
     Dosage: 375 MG/M2, UNK
     Route: 042
     Dates: start: 200510, end: 200605
  9. HOLOXAN [Suspect]
     Active Substance: IFOSFAMIDE
     Indication: HODGKIN^S DISEASE
     Dosage: 4000 MG/M2, UNK
     Route: 042
     Dates: start: 201210, end: 201301
  10. VELBE [Suspect]
     Active Substance: VINBLASTINE SULFATE
     Indication: HODGKIN^S DISEASE
     Dosage: 6 MG/M2, UNK
     Route: 042
     Dates: start: 200510, end: 200605
  11. CISPLATIN. [Suspect]
     Active Substance: CISPLATIN
     Indication: HODGKIN^S DISEASE
     Dosage: 100 MG/M2, UNK
     Route: 042
     Dates: start: 201206, end: 201209
  12. PREVISCAN /00789001/ [Concomitant]
     Active Substance: FLUINDIONE
  13. DEXAMETHASONE. [Concomitant]
     Active Substance: DEXAMETHASONE
     Dosage: 40 MG, UNK
     Route: 048
     Dates: start: 201206
  14. DOXORUBICIN HCL [Suspect]
     Active Substance: DOXORUBICIN HYDROCHLORIDE
     Indication: HODGKIN^S DISEASE
     Dosage: 30 MG/M2, UNK
     Route: 042
     Dates: start: 200510, end: 200605
  15. ALKERAN [Suspect]
     Active Substance: MELPHALAN
     Dosage: 140 MG/M2 (OR 265 MG), UNK
     Route: 048
     Dates: start: 20130303, end: 20130303

REACTIONS (2)
  - Second primary malignancy [Not Recovered/Not Resolved]
  - Leukaemia [Not Recovered/Not Resolved]

NARRATIVE: CASE EVENT DATE: 201512
